FAERS Safety Report 5413047-3 (Version None)
Quarter: 2007Q3

REPORT INFORMATION
  Report Type: 
  Country: None (occurrence: None)
  Receive Date: 20070813
  Receipt Date: 20070801
  Transmission Date: 20080115
  Serious: Yes (Other)
  Sender: FDA-Public Use
  Company Number: US-PFIZER INC-2007063940

PATIENT
  Sex: Male
  Weight: 77.272 kg

DRUGS (4)
  1. XALATAN [Suspect]
     Indication: GLAUCOMA
  2. WARFARIN SODIUM [Concomitant]
  3. ZETIA [Concomitant]
  4. PAXIL [Concomitant]

REACTIONS (2)
  - EYE LASER SURGERY [None]
  - LARYNGITIS [None]
